FAERS Safety Report 8045676-5 (Version None)
Quarter: 2012Q1

REPORT INFORMATION
  Report Type: 
  Country: None (occurrence: None)
  Receive Date: 20120112
  Receipt Date: 20120112
  Transmission Date: 20120608
  Serious: Yes (Death)
  Sender: FDA-Public Use
  Company Number: None

PATIENT
  Sex: Female
  Weight: 70 kg

DRUGS (3)
  1. IBUPROFEN TABLETS [Suspect]
     Indication: CONTUSION
     Dosage: 800MG 3/DAY ORAL
     Route: 048
     Dates: start: 20030212, end: 20030320
  2. VALDECOXIB [Suspect]
     Indication: TENDONITIS
     Dosage: 10 MG ONCE A DAY ORAL
     Route: 048
     Dates: start: 20030428, end: 20030630
  3. CYCLOBENZAPRINE [Concomitant]

REACTIONS (3)
  - COMA [None]
  - RENAL FAILURE [None]
  - HYPERTENSION [None]
